FAERS Safety Report 19641281 (Version 7)
Quarter: 2021Q3

REPORT INFORMATION
  Report Type: Report from Study
  Country: US (occurrence: US)
  Receive Date: 20210730
  Receipt Date: 20210928
  Transmission Date: 20211014
  Serious: Yes (Hospitalization, Other)
  Sender: FDA-Public Use
  Company Number: NVSC2021US169316

PATIENT
  Age: 74 Year
  Sex: Female

DRUGS (2)
  1. ENTRESTO [Suspect]
     Active Substance: SACUBITRIL\VALSARTAN
     Indication: CARDIAC FAILURE
     Dosage: 1 DF, UNKNOWN (49/51 MG)
     Route: 065
     Dates: start: 202103
  2. METOPROLOL. [Suspect]
     Active Substance: METOPROLOL
     Indication: PRODUCT USED FOR UNKNOWN INDICATION
     Dosage: UNK
     Route: 065

REACTIONS (19)
  - Back pain [Not Recovered/Not Resolved]
  - Presyncope [Recovering/Resolving]
  - Myocardial infarction [Unknown]
  - Fatigue [Unknown]
  - Urinary tract infection [Recovering/Resolving]
  - Stress [Unknown]
  - Movement disorder [Not Recovered/Not Resolved]
  - Gait disturbance [Not Recovered/Not Resolved]
  - Cough [Recovering/Resolving]
  - Cardiac failure congestive [Unknown]
  - Chest pain [Recovering/Resolving]
  - Back injury [Unknown]
  - Blood pressure decreased [Not Recovered/Not Resolved]
  - Paranasal sinus hypersecretion [Unknown]
  - Tearfulness [Unknown]
  - Sinusitis [Unknown]
  - Hypotension [Not Recovered/Not Resolved]
  - Aphonia [Unknown]
  - Pain [Unknown]

NARRATIVE: CASE EVENT DATE: 2020
